FAERS Safety Report 9625788 (Version 2)
Quarter: 2013Q4

REPORT INFORMATION
  Report Type: Spontaneous
  Country: US (occurrence: US)
  Receive Date: 20131016
  Receipt Date: 20131022
  Transmission Date: 20140711
  Serious: Yes (Death, Hospitalization)
  Sender: FDA-Public Use
  Company Number: US-ASTELLAS-2013US010595

PATIENT
  Age: 60 Year
  Sex: Female

DRUGS (5)
  1. TARCEVA [Suspect]
     Indication: NON-SMALL CELL LUNG CANCER METASTATIC
     Dosage: 150 MG, UID/QD
     Route: 048
     Dates: start: 20130114, end: 201308
  2. TARCEVA [Suspect]
     Dosage: 150 MG, UID/QD
     Route: 048
     Dates: start: 20130717, end: 20130820
  3. OXYCONTIN [Concomitant]
     Indication: PAIN
     Dosage: 10 MG, Q12 HOURS
     Route: 048
  4. DECADRON                           /00016001/ [Concomitant]
     Indication: INCREASED APPETITE
     Dosage: 2 MG, Q12 HOURS
     Route: 048
  5. OXYCODONE [Concomitant]
     Indication: PRODUCT USED FOR UNKNOWN INDICATION
     Dosage: 5 MG, PRN
     Route: 048

REACTIONS (2)
  - Malignant neoplasm progression [Fatal]
  - Bone pain [Unknown]
